FAERS Safety Report 4412423-5 (Version None)
Quarter: 2004Q3

REPORT INFORMATION
  Report Type: 
  Country: None (occurrence: None)
  Receive Date: 20040727
  Receipt Date: 20040714
  Transmission Date: 20050211
  Serious: Yes (Life-Threatening, Disabling)
  Sender: FDA-Public Use
  Company Number: 04P-163-0267015-00

PATIENT
  Age: 75 Year
  Sex: Female

DRUGS (10)
  1. TRICOR [Suspect]
     Indication: BLOOD TRIGLYCERIDES INCREASED
     Dosage: 130 MG, ONCE, PER ORAL
     Route: 048
     Dates: start: 20040601, end: 20040601
  2. TRICOR [Suspect]
     Indication: BLOOD TRIGLYCERIDES INCREASED
     Dosage: 54 MG, 1 IN 1 D, PER ORAL
     Route: 048
     Dates: start: 20040601, end: 20040601
  3. ENDUR [Concomitant]
  4. METOPROLOL SUCCINATE [Concomitant]
  5. CELECOXIB [Concomitant]
  6. TAMOXIFEN CITRATE [Concomitant]
  7. CLOPIDOGREL BISULFATE [Concomitant]
  8. VERAPAMIL HYDROCHLORIDE [Concomitant]
  9. GABAPENTIN [Concomitant]
  10. ZOCOR [Concomitant]

REACTIONS (8)
  - ABDOMINAL PAIN UPPER [None]
  - DEPRESSION [None]
  - DISORIENTATION [None]
  - FEELING ABNORMAL [None]
  - FORMICATION [None]
  - HALLUCINATION [None]
  - HOT FLUSH [None]
  - IMPAIRED DRIVING ABILITY [None]
